FAERS Safety Report 8112232-X (Version None)
Quarter: 2012Q1

REPORT INFORMATION
  Report Type: 
  Country: None (occurrence: None)
  Receive Date: 20120203
  Receipt Date: 20120130
  Transmission Date: 20120608
  Serious: No
  Sender: FDA-Public Use
  Company Number: US-PFIZER INC-2012026120

PATIENT
  Age: 56 Year
  Sex: Female

DRUGS (7)
  1. ATIVAN [Concomitant]
     Dosage: UNK
  2. VILAZODONE [Suspect]
     Indication: GENERALISED ANXIETY DISORDER
     Dosage: 10 MG, 1X/DAY
     Route: 048
     Dates: start: 20120107
  3. ZOLOFT [Suspect]
     Dosage: 50 MG, 1X/DAY
     Route: 048
     Dates: start: 20120107
  4. ZOLOFT [Suspect]
     Indication: MAJOR DEPRESSION
     Dosage: 100 MG, 1X/DAY
     Route: 048
     Dates: end: 20120106
  5. TRAZODONE [Concomitant]
     Dosage: UNK
  6. VILAZODONE [Suspect]
     Indication: MAJOR DEPRESSION
     Dosage: 10 MG, 1X/DAY
     Route: 048
     Dates: start: 20111222, end: 20111225
  7. LAMICTAL [Concomitant]
     Dosage: UNK

REACTIONS (2)
  - CONFUSIONAL STATE [None]
  - ANXIETY [None]
